FAERS Safety Report 17099600 (Version 1)
Quarter: 2019Q4

REPORT INFORMATION
  Report Type: Report from Study
  Country: FR (occurrence: FR)
  Receive Date: 20191202
  Receipt Date: 20191202
  Transmission Date: 20200122
  Serious: Yes (Other)
  Sender: FDA-Public Use
  Company Number: FR-PFIZER INC-2019511162

PATIENT
  Age: 15 Year
  Sex: Male
  Weight: 47 kg

DRUGS (2)
  1. SOMATROPIN. [Suspect]
     Active Substance: SOMATROPIN
     Indication: SMALL FOR DATES BABY
     Dosage: 0.047 MG/KG, QD
     Route: 058
     Dates: start: 20120904
  2. SOMATROPIN. [Suspect]
     Active Substance: SOMATROPIN
     Dosage: 2.2 MG, QD
     Route: 058
     Dates: start: 20190118

REACTIONS (1)
  - Hypothyroidism [Not Recovered/Not Resolved]

NARRATIVE: CASE EVENT DATE: 20161021
